FAERS Safety Report 22243346 (Version 1)
Quarter: 2023Q2

REPORT INFORMATION
  Report Type: Spontaneous
  Country: GB (occurrence: GB)
  Receive Date: 20230424
  Receipt Date: 20230424
  Transmission Date: 20230722
  Serious: Yes (Other)
  Sender: FDA-Public Use
  Company Number: GB-MHRA-MED-202304171803320200-PKWZD

PATIENT
  Age: 5 Year
  Sex: Male

DRUGS (1)
  1. MONTELUKAST [Suspect]
     Active Substance: MONTELUKAST SODIUM
     Indication: Asthma
     Dosage: 4 MILLIGRAM, QD(AT NIGHT )
     Route: 065
     Dates: start: 20230403, end: 20230414

REACTIONS (5)
  - Vomiting [Recovering/Resolving]
  - Epistaxis [Recovered/Resolved]
  - Hallucination [Recovered/Resolved with Sequelae]
  - Nightmare [Recovering/Resolving]
  - Anxiety [Recovering/Resolving]

NARRATIVE: CASE EVENT DATE: 20230410
